FAERS Safety Report 14400370 (Version 1)
Quarter: 2018Q1

REPORT INFORMATION
  Report Type: Spontaneous
  Country: IN (occurrence: IN)
  Receive Date: 20180117
  Receipt Date: 20180117
  Transmission Date: 20180509
  Serious: Yes (Death)
  Sender: FDA-Public Use
  Company Number: IN-CIPLA (EU) LIMITED-2018IN01371

PATIENT

DRUGS (6)
  1. GEMCITABINE [Suspect]
     Active Substance: GEMCITABINE\GEMCITABINE HYDROCHLORIDE
     Indication: FOLLICULAR DENDRITIC CELL SARCOMA
     Dosage: UNK
     Route: 065
  2. CYCLOPHOSPHAMIDE. [Suspect]
     Active Substance: CYCLOPHOSPHAMIDE
     Indication: FOLLICULAR DENDRITIC CELL SARCOMA
     Dosage: UNK, 6 CYCLES
     Route: 065
  3. DOXORUBICIN [Suspect]
     Active Substance: DOXORUBICIN
     Indication: FOLLICULAR DENDRITIC CELL SARCOMA
     Dosage: UNK, 6 CYCLES
     Route: 065
  4. PREDNISONE. [Suspect]
     Active Substance: PREDNISONE
     Indication: FOLLICULAR DENDRITIC CELL SARCOMA
     Dosage: UNK, 6 CYCLES
     Route: 065
  5. DOCETAXEL. [Suspect]
     Active Substance: DOCETAXEL
     Indication: FOLLICULAR DENDRITIC CELL SARCOMA
     Dosage: UNK
     Route: 065
  6. VINCRISTINE [Suspect]
     Active Substance: VINCRISTINE
     Indication: FOLLICULAR DENDRITIC CELL SARCOMA
     Dosage: UNK, 6 CYCLES
     Route: 065

REACTIONS (2)
  - Exposure during pregnancy [Unknown]
  - Malignant neoplasm progression [Fatal]
